FAERS Safety Report 7004515-1 (Version None)
Quarter: 2010Q3

REPORT INFORMATION
  Report Type: 
  Country: None (occurrence: None)
  Receive Date: 20100921
  Receipt Date: 20100913
  Transmission Date: 20110219
  Serious: No
  Sender: FDA-Public Use
  Company Number: US-BIOGENIDEC-2010BI032180

PATIENT
  Age: 29 Year
  Sex: Female

DRUGS (1)
  1. TYSABRI [Suspect]
     Indication: MULTIPLE SCLEROSIS
     Route: 042
     Dates: start: 20100729

REACTIONS (6)
  - ABDOMINAL PAIN UPPER [None]
  - COGNITIVE DISORDER [None]
  - DIZZINESS [None]
  - EYE PAIN [None]
  - HEADACHE [None]
  - MEMORY IMPAIRMENT [None]
